FAERS Safety Report 7306431-4 (Version None)
Quarter: 2011Q1

REPORT INFORMATION
  Report Type: 
  Country: None (occurrence: None)
  Receive Date: 20110222
  Receipt Date: 20110221
  Transmission Date: 20110831
  Serious: Yes (Other)
  Sender: FDA-Public Use
  Company Number: CZ-ABBOTT-11P-217-0699287-00

PATIENT
  Sex: Female
  Weight: 58 kg

DRUGS (2)
  1. HUMIRA [Suspect]
     Indication: PSORIASIS
     Route: 058
     Dates: start: 20091229, end: 20101107
  2. HELICID [Concomitant]
     Indication: PRODUCT USED FOR UNKNOWN INDICATION

REACTIONS (10)
  - PAIN OF SKIN [None]
  - ARTHROPATHY [None]
  - SARCOIDOSIS [None]
  - PULMONARY SARCOIDOSIS [None]
  - ALVEOLITIS [None]
  - ARTHRALGIA [None]
  - IMPAIRED HEALING [None]
  - ERYTHEMA NODOSUM [None]
  - PSORIASIS [None]
  - SKIN MASS [None]
